FAERS Safety Report 8236247-6 (Version None)
Quarter: 2012Q1

REPORT INFORMATION
  Report Type: 
  Country: None (occurrence: None)
  Receive Date: 20120327
  Receipt Date: 20120320
  Transmission Date: 20120608
  Serious: Yes (Hospitalization, Other)
  Sender: FDA-Public Use
  Company Number: PHEH2011US010111

PATIENT
  Sex: Male
  Weight: 82.54 kg

DRUGS (9)
  1. METOPROLOL TARTRATE [Concomitant]
     Indication: HYPERTENSION
     Dosage: 25 MG, BID
     Route: 048
  2. PREDNISONE TAB [Concomitant]
     Indication: LUPUS NEPHRITIS
     Dosage: 100 MG, QD
     Route: 048
  3. PROMETHAZINE HCL [Concomitant]
     Indication: NAUSEA
     Dosage: 25 MG, PRN
     Route: 048
     Dates: start: 20110921
  4. ZETIA [Concomitant]
     Dosage: 10 MG, QD
     Route: 048
  5. LIPITOR [Concomitant]
     Indication: DYSLIPIDAEMIA
     Dosage: 40 MG, QD
     Route: 048
  6. FUROSEMIDE [Concomitant]
     Dosage: 40 MG, BID
     Route: 048
     Dates: start: 20110221
  7. ERYTHROMYCIN [Concomitant]
  8. NEORAL [Suspect]
     Indication: LUPUS NEPHRITIS
     Dosage: 200 MG, BID
     Route: 048
     Dates: start: 20110513, end: 20111101
  9. LISINOPRIL [Concomitant]
     Indication: HYPERTENSION
     Dosage: 20 MG, QD
     Route: 048
     Dates: start: 20110503

REACTIONS (18)
  - IDIOPATHIC THROMBOCYTOPENIC PURPURA [None]
  - OEDEMA PERIPHERAL [None]
  - PYREXIA [None]
  - CONTUSION [None]
  - BLOOD ALBUMIN DECREASED [None]
  - EMOTIONAL DISTRESS [None]
  - DENTAL PLAQUE [None]
  - MALAISE [None]
  - GINGIVITIS [None]
  - GINGIVAL BLEEDING [None]
  - GINGIVAL PAIN [None]
  - THROMBOCYTOPENIA [None]
  - GINGIVAL HYPERPLASIA [None]
  - DRUG INTOLERANCE [None]
  - PANCYTOPENIA [None]
  - GINGIVAL DISCOLOURATION [None]
  - RENAL FAILURE CHRONIC [None]
  - PROTEINURIA [None]
